FAERS Safety Report 14106170 (Version 1)
Quarter: 2017Q4

REPORT INFORMATION
  Report Type: Spontaneous
  Country: US (occurrence: US)
  Receive Date: 20171018
  Receipt Date: 20171018
  Transmission Date: 20180321
  Serious: No
  Sender: FDA-Public Use
  Company Number: US-AMGEN-USASP2016149261

PATIENT
  Age: 62 Year
  Sex: Female
  Weight: 53.7 kg

DRUGS (6)
  1. LEVOTHYROXINE. [Concomitant]
     Active Substance: LEVOTHYROXINE
     Dosage: 112 MUG, UNK
  2. CALCIUM [Concomitant]
     Active Substance: CALCIUM
  3. VITAMIN K2 [Concomitant]
     Active Substance: MENAQUINONE 6
  4. MAGNESIUM [Concomitant]
     Active Substance: MAGNESIUM
  5. ESSENTIAL [Concomitant]
  6. PROLIA [Suspect]
     Active Substance: DENOSUMAB
     Indication: OSTEOPOROSIS
     Dosage: 60 MG/ML, Q6MO
     Route: 058
     Dates: start: 201604

REACTIONS (1)
  - Urinary incontinence [Unknown]

NARRATIVE: CASE EVENT DATE: 201605
